FAERS Safety Report 24900783 (Version 1)
Quarter: 2025Q1

REPORT INFORMATION
  Report Type: Spontaneous
  Country: TW (occurrence: TW)
  Receive Date: 20250129
  Receipt Date: 20250129
  Transmission Date: 20250408
  Serious: Yes (Life-Threatening, Hospitalization, Other)
  Sender: PFIZER
  Company Number: TW-PFIZER INC-PV202500009936

PATIENT
  Age: 17 Year
  Sex: Female
  Weight: 45 kg

DRUGS (33)
  1. NOREPINEPHRINE BITARTRATE [Suspect]
     Active Substance: NOREPINEPHRINE BITARTRATE
     Indication: Cerebral hypoperfusion
     Route: 042
  2. NOREPINEPHRINE BITARTRATE [Suspect]
     Active Substance: NOREPINEPHRINE BITARTRATE
     Indication: Hypotension
     Route: 042
  3. NOREPINEPHRINE BITARTRATE [Suspect]
     Active Substance: NOREPINEPHRINE BITARTRATE
     Route: 042
  4. NOREPINEPHRINE BITARTRATE [Suspect]
     Active Substance: NOREPINEPHRINE BITARTRATE
     Route: 042
  5. NOREPINEPHRINE BITARTRATE [Suspect]
     Active Substance: NOREPINEPHRINE BITARTRATE
     Route: 042
  6. NOREPINEPHRINE BITARTRATE [Suspect]
     Active Substance: NOREPINEPHRINE BITARTRATE
  7. PROPOFOL [Concomitant]
     Active Substance: PROPOFOL
     Indication: Sedation
  8. PROPOFOL [Concomitant]
     Active Substance: PROPOFOL
  9. PROPOFOL [Concomitant]
     Active Substance: PROPOFOL
  10. PROPOFOL [Concomitant]
     Active Substance: PROPOFOL
  11. PROPOFOL [Concomitant]
     Active Substance: PROPOFOL
  12. HETASTARCH [Concomitant]
     Active Substance: HETASTARCH
  13. ALBUMIN HUMAN [Concomitant]
     Active Substance: ALBUMIN HUMAN
  14. MANNITOL [Concomitant]
     Active Substance: MANNITOL
     Indication: Cerebral hypoperfusion
  15. MANNITOL [Concomitant]
     Active Substance: MANNITOL
     Indication: Hypotension
  16. DOPAMINE [Concomitant]
     Active Substance: DOPAMINE HYDROCHLORIDE
     Indication: Cerebral hypoperfusion
  17. DOPAMINE [Concomitant]
     Active Substance: DOPAMINE HYDROCHLORIDE
     Indication: Hypotension
  18. DOPAMINE [Concomitant]
     Active Substance: DOPAMINE HYDROCHLORIDE
  19. DOPAMINE [Concomitant]
     Active Substance: DOPAMINE HYDROCHLORIDE
  20. DOPAMINE [Concomitant]
     Active Substance: DOPAMINE HYDROCHLORIDE
  21. PHENYTOIN [Concomitant]
     Active Substance: PHENYTOIN
  22. METOCLOPRAMIDE [Concomitant]
     Active Substance: METOCLOPRAMIDE
  23. CEFAZOLIN [Concomitant]
     Active Substance: CEFAZOLIN
  24. POTASSIUM CHLORIDE [Concomitant]
     Active Substance: POTASSIUM CHLORIDE
  25. MORPHINE [Concomitant]
     Active Substance: MORPHINE
  26. RANITIDINE [Concomitant]
     Active Substance: RANITIDINE
  27. ACETAMINOPHEN [Concomitant]
     Active Substance: ACETAMINOPHEN
  28. ATRACURIUM [Concomitant]
     Active Substance: ATRACURIUM
  29. ATRACURIUM [Concomitant]
     Active Substance: ATRACURIUM
  30. ATRACURIUM [Concomitant]
     Active Substance: ATRACURIUM
  31. ATRACURIUM [Concomitant]
     Active Substance: ATRACURIUM
  32. ATRACURIUM [Concomitant]
     Active Substance: ATRACURIUM
  33. CODEINE [Concomitant]
     Active Substance: CODEINE

REACTIONS (3)
  - Rhabdomyolysis [Recovered/Resolved]
  - Myoglobinuria [Recovered/Resolved]
  - Acute kidney injury [Recovered/Resolved]
